FAERS Safety Report 7986300-7 (Version None)
Quarter: 2011Q4

REPORT INFORMATION
  Report Type: 
  Country: None (occurrence: None)
  Receive Date: 20111216
  Receipt Date: 20110125
  Transmission Date: 20120403
  Serious: Yes (Hospitalization)
  Sender: FDA-Public Use
  Company Number: US-BRISTOL-MYERS SQUIBB COMPANY-15511736

PATIENT
  Age: 32 Year
  Sex: Female

DRUGS (3)
  1. TAXOL [Suspect]
  2. LAMOTRIGINE [Suspect]
  3. ABILIFY [Suspect]
     Dates: start: 20101101

REACTIONS (1)
  - SUICIDE ATTEMPT [None]
